FAERS Safety Report 5725143-1 (Version None)
Quarter: 2008Q2

REPORT INFORMATION
  Report Type: 
  Country: None (occurrence: None)
  Receive Date: 20080429
  Receipt Date: 20080408
  Transmission Date: 20081010
  Serious: Yes (Other)
  Sender: FDA-Public Use
  Company Number: ADE# 08-046

PATIENT
  Sex: Female

DRUGS (11)
  1. CLONAZEPAM [Suspect]
     Indication: ANXIETY
     Dosage: 3-4 TABS DAILY
     Dates: start: 20080301
  2. DIOVAN [Concomitant]
  3. REBIF [Concomitant]
  4. ATARAX [Concomitant]
  5. TEGRETOL-XR [Concomitant]
  6. DYAZIDE [Concomitant]
  7. LEVOXYL [Concomitant]
  8. ANTIVERT [Concomitant]
  9. LODINE [Concomitant]
  10. LOVASTATIN [Concomitant]
  11. ZANTAC [Concomitant]

REACTIONS (10)
  - DERMATITIS DIAPER [None]
  - FEELING ABNORMAL [None]
  - FUNGAL INFECTION [None]
  - GAIT DISTURBANCE [None]
  - HEART RATE INCREASED [None]
  - HYPERTENSION [None]
  - ILL-DEFINED DISORDER [None]
  - SPEECH DISORDER [None]
  - THERAPEUTIC RESPONSE UNEXPECTED WITH DRUG SUBSTITUTION [None]
  - THINKING ABNORMAL [None]
